FAERS Safety Report 21296760 (Version 2)
Quarter: 2022Q4

REPORT INFORMATION
  Report Type: Report from Study
  Country: IN (occurrence: IN)
  Receive Date: 20220906
  Receipt Date: 20221026
  Transmission Date: 20230112
  Serious: Yes (Other)
  Sender: FDA-Public Use
  Company Number: IN-TAKEDA-2022TUS061170

PATIENT
  Age: 40 Year
  Sex: Male

DRUGS (1)
  1. VEDOLIZUMAB [Suspect]
     Active Substance: VEDOLIZUMAB
     Indication: Colitis ulcerative
     Dosage: 300 MILLIGRAM
     Route: 042

REACTIONS (7)
  - Haematochezia [Unknown]
  - Stress [Unknown]
  - Frequent bowel movements [Unknown]
  - Mucous stools [Unknown]
  - Weight decreased [Unknown]
  - Sleep disorder [Unknown]
  - Drug ineffective [Unknown]
